FAERS Safety Report 23041770 (Version 1)
Quarter: 2023Q4

REPORT INFORMATION
  Report Type: Spontaneous
  Country: US (occurrence: US)
  Receive Date: 20231007
  Receipt Date: 20231007
  Transmission Date: 20240110
  Serious: Yes (Hospitalization)
  Sender: FDA-Public Use
  Company Number: US-Fresenius Medical Care Renal Therapies Group-FMC-2310-001086

PATIENT
  Age: 75 Year
  Sex: Male

DRUGS (2)
  1. DELFLEX WITH DEXTROSE 1.5% LOW MAGNESIUM LOW CALCIUM [Suspect]
     Active Substance: CALCIUM CHLORIDE\DEXTROSE\MAGNESIUM CHLORIDE\SODIUM CHLORIDE\SODIUM LACTATE
     Indication: End stage renal disease
     Dosage: EXCHANGES: 5, FV: 2000 ML, DWELL TIME: 1HR 30MIN, TOTAL TX TIME: 8 HR.14 MIN, NO DAYTIME EXCHANGES.
     Route: 033
     Dates: start: 20190809
  2. DELFLEX WITH DEXTROSE 2.5% LOW MAGNESIUM LOW CALCIUM [Suspect]
     Active Substance: CALCIUM CHLORIDE\DEXTROSE\MAGNESIUM CHLORIDE\SODIUM CHLORIDE\SODIUM LACTATE
     Indication: End stage renal disease
     Dosage: EXCHANGES: 5, FV: 2000 ML, DWELL TIME: 1HR 30MIN, TOTAL TX TIME: 8 HR.14 MIN, NO DAYTIME EXCHANGES.
     Route: 033
     Dates: start: 20190809

REACTIONS (2)
  - Hypervolaemia [Recovered/Resolved]
  - Product selection error [Unknown]

NARRATIVE: CASE EVENT DATE: 20230926
